FAERS Safety Report 19024384 (Version 2)
Quarter: 2021Q2

REPORT INFORMATION
  Report Type: Report from Study
  Country: None (occurrence: US)
  Receive Date: 20210317
  Receipt Date: 20210402
  Transmission Date: 20210717
  Serious: Yes (Other)
  Sender: FDA-Public Use
  Company Number: US-ABBVIE-20K-163-3588175-00

PATIENT
  Sex: Male
  Weight: 55.39 kg

DRUGS (11)
  1. GABAPENTIN. [Concomitant]
     Active Substance: GABAPENTIN
     Indication: COUGH
  2. VITAMIN D3 [Concomitant]
     Active Substance: CHOLECALCIFEROL
     Indication: SUPPLEMENTATION THERAPY
  3. HUMIRA [Suspect]
     Active Substance: ADALIMUMAB
     Indication: CROHN^S DISEASE
     Route: 058
     Dates: start: 2014, end: 202008
  4. COVID?19 VACCINE NOS. [Concomitant]
     Active Substance: COVID-19 VACCINE NOS
     Indication: COVID-19 IMMUNISATION
     Dosage: PFIZER MANUFACTURER
     Route: 030
     Dates: start: 20210312
  5. HUMIRA [Suspect]
     Active Substance: ADALIMUMAB
     Route: 058
     Dates: start: 202102
  6. FENOFIBRATE. [Concomitant]
     Active Substance: FENOFIBRATE
     Indication: HIGH DENSITY LIPOPROTEIN DECREASED
  7. HUMIRA [Suspect]
     Active Substance: ADALIMUMAB
     Route: 058
     Dates: start: 202008, end: 20210122
  8. BISOPROLOL FUMARATE. [Concomitant]
     Active Substance: BISOPROLOL FUMARATE
     Indication: HYPERTENSION
  9. FAMOTIDINE. [Concomitant]
     Active Substance: FAMOTIDINE
     Indication: GASTROOESOPHAGEAL REFLUX DISEASE
  10. TURMERIC [Concomitant]
     Active Substance: HERBALS\TURMERIC
     Indication: SUPPLEMENTATION THERAPY
  11. TYLENOL [Concomitant]
     Active Substance: ACETAMINOPHEN
     Indication: PAIN

REACTIONS (9)
  - Post procedural complication [Not Recovered/Not Resolved]
  - Arthralgia [Recovering/Resolving]
  - Arthritis [Recovering/Resolving]
  - Pain [Unknown]
  - Nausea [Unknown]
  - Gait disturbance [Recovering/Resolving]
  - Prostatic urethral lift procedure [Unknown]
  - Nodule [Not Recovered/Not Resolved]
  - Osteoarthritis [Unknown]

NARRATIVE: CASE EVENT DATE: 2014
